FAERS Safety Report 7075618-0 (Version None)
Quarter: 2010Q4

REPORT INFORMATION
  Report Type: 
  Country: None (occurrence: None)
  Receive Date: 20101030
  Receipt Date: 20101013
  Transmission Date: 20110411
  Serious: No
  Sender: FDA-Public Use
  Company Number: US-WYE-H18178510

PATIENT
  Sex: Male
  Weight: 108.96 kg

DRUGS (10)
  1. PRISTIQ [Suspect]
     Indication: DEPRESSION
     Dates: start: 20091101, end: 20100801
  2. PRISTIQ [Suspect]
     Dates: start: 20100801
  3. FLAXSEED [Suspect]
     Indication: DEPRESSION
     Dosage: UNSPECIFIED
     Dates: start: 20100801, end: 20101001
  4. OMEGA-3 MARINE TRIGLYCERIDES [Suspect]
     Indication: DEPRESSION
     Dosage: UNSPECIFIED
     Dates: start: 20100701, end: 20100801
  5. TERAZOSIN HCL [Concomitant]
  6. VITAMIN B COMPLEX [Suspect]
     Indication: DEPRESSION
     Dosage: UNSPECIFIED
     Dates: start: 20100701, end: 20101001
  7. METFORMIN [Concomitant]
  8. DILTIAZEM [Concomitant]
  9. LAMICTAL [Concomitant]
  10. VITAMIN D3 [Suspect]
     Indication: DEPRESSION
     Dosage: UNSPECIFIED
     Dates: start: 20100701, end: 20101001

REACTIONS (9)
  - CONSTIPATION [None]
  - DIZZINESS [None]
  - DRUG INTERACTION [None]
  - DRY MOUTH [None]
  - FATIGUE [None]
  - HYPERHIDROSIS [None]
  - NAUSEA [None]
  - POOR QUALITY SLEEP [None]
  - VOMITING [None]
